FAERS Safety Report 15630132 (Version 1)
Quarter: 2018Q4

REPORT INFORMATION
  Report Type: Spontaneous
  Country: AU (occurrence: AU)
  Receive Date: 20181118
  Receipt Date: 20181118
  Transmission Date: 20190205
  Serious: Yes (Other)
  Sender: FDA-Public Use
  Company Number: AU-TEVA-2018-AU-974385

PATIENT
  Age: 41 Year
  Sex: Male

DRUGS (1)
  1. IMATINIB. [Suspect]
     Active Substance: IMATINIB MESYLATE
     Indication: CHRONIC EOSINOPHILIC LEUKAEMIA
     Dosage: 400 MILLIGRAM DAILY; IMATINIB 400MG
     Route: 048
     Dates: start: 20160719, end: 201708

REACTIONS (3)
  - Hepatic steatosis [Recovered/Resolved]
  - Toxicity to various agents [Unknown]
  - Hepatic function abnormal [Unknown]
